FAERS Safety Report 9181317 (Version 1)
Quarter: 2013Q1

REPORT INFORMATION
  Report Type: Spontaneous
  Country: TR (occurrence: TR)
  Receive Date: 20130322
  Receipt Date: 20130322
  Transmission Date: 20140127
  Serious: Yes (Hospitalization)
  Sender: FDA-Public Use
  Company Number: TR-009507513-1303TUR008169

PATIENT
  Age: 25 Year
  Sex: Female

DRUGS (1)
  1. PUREGON [Suspect]
     Indication: OVULATION INDUCTION
     Dosage: 75 IU, QD

REACTIONS (1)
  - Cerebral venous thrombosis [Recovered/Resolved]
